FAERS Safety Report 7115036-X (Version None)
Quarter: 2010Q4

REPORT INFORMATION
  Report Type: 
  Country: None (occurrence: None)
  Receive Date: 20101122
  Receipt Date: 20101109
  Transmission Date: 20110411
  Serious: Yes (Other)
  Sender: FDA-Public Use
  Company Number: US-RB-015158-10

PATIENT
  Age: 4 Year
  Sex: Male

DRUGS (1)
  1. DELSYM [Suspect]
     Dosage: PATIENT TOOK 3-5OZ IN A TWO HOUR PERIOD.
     Route: 048

REACTIONS (3)
  - OVERDOSE [None]
  - PUPIL FIXED [None]
  - UNRESPONSIVE TO STIMULI [None]
